FAERS Safety Report 14623574 (Version 1)
Quarter: 2018Q1

REPORT INFORMATION
  Report Type: Spontaneous
  Country: MX (occurrence: MX)
  Receive Date: 20180312
  Receipt Date: 20180312
  Transmission Date: 20180509
  Serious: Yes (Other)
  Sender: FDA-Public Use
  Company Number: MX-ROCHE-1372505

PATIENT
  Age: 79 Year
  Sex: Male
  Weight: 88 kg

DRUGS (12)
  1. INSULIN INTERMEDIATE [Concomitant]
     Dosage: 20 UNITS APPLIED DURING THE MORNING, 10 UNITS AT NIGHT
     Route: 058
  2. ERIVEDGE [Suspect]
     Active Substance: VISMODEGIB
     Route: 048
     Dates: start: 20140922, end: 20141004
  3. ERIVEDGE [Suspect]
     Active Substance: VISMODEGIB
     Dosage: SUSPENDED DUE TO BLOOD PRESSURE FLUCTUATION
     Route: 048
     Dates: start: 20140908, end: 201409
  4. INSULIN INTERMEDIATE [Concomitant]
     Indication: DIABETES MELLITUS
     Dosage: 25 UNITS APPLIED DURING THE MORNING, 15 UNITS AT NIGHT
     Route: 058
     Dates: end: 201406
  5. ENALAPRIL [Concomitant]
     Active Substance: ENALAPRIL
     Indication: HYPERTENSION
     Route: 048
  6. CAPTOPRIL. [Concomitant]
     Active Substance: CAPTOPRIL
     Indication: HYPERTENSION
     Dosage: 1-0-1
     Route: 048
     Dates: end: 20140908
  7. ERIVEDGE [Suspect]
     Active Substance: VISMODEGIB
     Indication: BASAL CELL CARCINOMA
     Dosage: SUSPENDED DUE TO SHORTAGE
     Route: 048
     Dates: start: 20140205, end: 20140612
  8. METFORMIN [Concomitant]
     Active Substance: METFORMIN HYDROCHLORIDE
     Indication: DIABETES MELLITUS
     Route: 048
  9. METOPROLOL. [Concomitant]
     Active Substance: METOPROLOL
     Route: 048
  10. ERIVEDGE [Suspect]
     Active Substance: VISMODEGIB
     Route: 048
     Dates: start: 201507, end: 20151121
  11. INSULIN INTERMEDIATE [Concomitant]
     Dosage: 15 UNITS APPLIED DURING THE MORNING, 10 UNITS AT NIGHT
     Route: 058
     Dates: start: 201406
  12. DICLOFENAC [Concomitant]
     Active Substance: DICLOFENAC
     Indication: OSTEOARTHRITIS
     Route: 048

REACTIONS (17)
  - Muscle spasms [Recovered/Resolved]
  - Blood pressure fluctuation [Recovered/Resolved]
  - Skin discolouration [Recovered/Resolved]
  - Diarrhoea [Recovered/Resolved]
  - Alopecia [Recovered/Resolved]
  - Decreased appetite [Recovered/Resolved]
  - Dizziness [Recovered/Resolved]
  - Blood glucose decreased [Recovered/Resolved]
  - Hypoglycaemia [Recovered/Resolved]
  - Blood triglycerides increased [Unknown]
  - Pain in extremity [Recovered/Resolved]
  - Ulcerative keratitis [Not Recovered/Not Resolved]
  - Nausea [Not Recovered/Not Resolved]
  - Fatigue [Recovered/Resolved]
  - Dysgeusia [Recovered/Resolved]
  - Tremor [Recovered/Resolved]
  - Weight decreased [Recovered/Resolved]

NARRATIVE: CASE EVENT DATE: 20140205
